FAERS Safety Report 20396645 (Version 2)
Quarter: 2022Q1

REPORT INFORMATION
  Report Type: Spontaneous
  Country: US (occurrence: US)
  Receive Date: 20220130
  Receipt Date: 20220201
  Transmission Date: 20220423
  Serious: No
  Sender: FDA-Public Use
  Company Number: US-ABBVIE-21K-163-3766568-00

PATIENT
  Age: 44 Year
  Sex: Male

DRUGS (11)
  1. HUMIRA [Suspect]
     Active Substance: ADALIMUMAB
     Indication: Psoriasis
     Route: 058
     Dates: start: 201903
  2. OMEPRAZOLE [Concomitant]
     Active Substance: OMEPRAZOLE
     Indication: Prophylaxis
     Route: 065
  3. OMEPRAZOLE [Concomitant]
     Active Substance: OMEPRAZOLE
     Indication: Gastrooesophageal reflux disease
  4. LISINOPRIL [Concomitant]
     Active Substance: LISINOPRIL
     Indication: Hypertension
     Route: 065
  5. HYDROCHLOROTHIAZIDE [Concomitant]
     Active Substance: HYDROCHLOROTHIAZIDE
     Indication: Fluid retention
     Route: 065
  6. LORATADINE [Concomitant]
     Active Substance: LORATADINE
     Indication: Hypersensitivity
     Route: 065
  7. DICLOFENAC [Concomitant]
     Active Substance: DICLOFENAC
     Indication: Inflammation
     Route: 065
  8. TRAZODONE [Concomitant]
     Active Substance: TRAZODONE HYDROCHLORIDE
     Indication: Product used for unknown indication
     Route: 065
  9. TYLENOL [Concomitant]
     Active Substance: ACETAMINOPHEN
     Indication: Arthritis
     Route: 065
  10. BACLOFEN [Concomitant]
     Active Substance: BACLOFEN
     Indication: Muscle spasms
     Route: 065
  11. IMITREX [Concomitant]
     Active Substance: SUMATRIPTAN SUCCINATE
     Indication: Migraine
     Route: 065

REACTIONS (3)
  - Pruritus [Not Recovered/Not Resolved]
  - Dry skin [Not Recovered/Not Resolved]
  - Therapeutic product effect decreased [Not Recovered/Not Resolved]

NARRATIVE: CASE EVENT DATE: 20210101
